FAERS Safety Report 10714753 (Version 1)
Quarter: 2015Q1

REPORT INFORMATION
  Report Type: Spontaneous
  Country: US (occurrence: US)
  Receive Date: 20150115
  Receipt Date: 20150115
  Transmission Date: 20150721
  Serious: No
  Sender: FDA-Public Use
  Company Number: US-TEVA-534023USA

PATIENT
  Age: 31 Year
  Sex: Female

DRUGS (1)
  1. COPAXONE [Suspect]
     Active Substance: GLATIRAMER ACETATE
     Dosage: 17.1429 MILLIGRAM DAILY;
     Route: 058

REACTIONS (2)
  - Hallucination, visual [Unknown]
  - Skin mass [Unknown]

NARRATIVE: CASE EVENT DATE: 20150105
